FAERS Safety Report 15841526 (Version 2)
Quarter: 2019Q4

REPORT INFORMATION
  Report Type: Spontaneous
  Country: ES (occurrence: ES)
  Receive Date: 20190118
  Receipt Date: 20191009
  Transmission Date: 20200122
  Serious: Yes (Disabling)
  Sender: FDA-Public Use
  Company Number: ES-B.I. PHARMACEUTICALS,INC./RIDGEFIELD-2018-BI-049474

PATIENT
  Age: 65 Year
  Sex: Male

DRUGS (10)
  1. NARDIL [Suspect]
     Active Substance: PHENELZINE SULFATE
     Indication: BIPOLAR I DISORDER
     Dosage: UNK
     Route: 065
     Dates: start: 201806
  2. TRANKIMAZIN [Concomitant]
     Active Substance: ALPRAZOLAM
     Indication: DEPRESSION
     Dosage: 0.5 MILLIGRAM, AS NECESSARY
     Route: 048
  3. MIRAPEXIN [Suspect]
     Active Substance: PRAMIPEXOLE
     Indication: PARKINSON^S DISEASE
     Dosage: 1.05 MILLIGRAM, QD
     Route: 048
  4. SINEMET [Suspect]
     Active Substance: CARBIDOPA\LEVODOPA
     Indication: PARKINSON^S DISEASE
     Dosage: UNK
     Route: 048
     Dates: start: 201804
  5. MANERIX [Suspect]
     Active Substance: MOCLOBEMIDE
     Indication: DEPRESSION
     Dosage: UNK
     Route: 065
  6. RIVOTRIL [Concomitant]
     Active Substance: CLONAZEPAM
     Indication: PRODUCT USED FOR UNKNOWN INDICATION
     Dosage: 2 MILLIGRAM, QD
     Route: 048
  7. SINEMET PLUS [Suspect]
     Active Substance: CARBIDOPA\LEVODOPA
     Indication: PARKINSON^S DISEASE
     Dosage: UNK, STRENGTH - 25/100 MG (IR)
     Route: 048
     Dates: start: 201804
  8. NARDIL [Suspect]
     Active Substance: PHENELZINE SULFATE
     Dosage: DECREASED TO A MINIMUM DOSE OF 15 (UNITS NOT PROVIDE
     Route: 065
     Dates: start: 2018
  9. NARDIL [Suspect]
     Active Substance: PHENELZINE SULFATE
     Indication: DEPRESSION
     Dosage: UNK
     Route: 065
     Dates: start: 1993, end: 2018
  10. MOTILIUM [Concomitant]
     Active Substance: DOMPERIDONE
     Indication: OESOPHAGEAL DISORDER
     Dosage: UNK
     Route: 065

REACTIONS (36)
  - Bruxism [Unknown]
  - Contraindicated product prescribed [Unknown]
  - Ageusia [Not Recovered/Not Resolved]
  - Onychomalacia [Unknown]
  - Sleep disorder [Not Recovered/Not Resolved]
  - Dry mouth [Unknown]
  - Sensation of foreign body [Unknown]
  - Tooth injury [Unknown]
  - Hot flush [Unknown]
  - Alopecia [Not Recovered/Not Resolved]
  - Somnolence [Not Recovered/Not Resolved]
  - Vertigo [Unknown]
  - Gastrointestinal disorder [Unknown]
  - Swelling of eyelid [Not Recovered/Not Resolved]
  - Dizziness [Unknown]
  - Eyelid ptosis [Not Recovered/Not Resolved]
  - Saliva altered [Unknown]
  - Erythema [Unknown]
  - Urinary incontinence [Recovering/Resolving]
  - Dizziness [Unknown]
  - Intentional product misuse [Unknown]
  - Anxiety [Unknown]
  - Asthenia [Unknown]
  - Back pain [Unknown]
  - Underdose [Recovered/Resolved]
  - Gait disturbance [Unknown]
  - Hallucination [Unknown]
  - Muscle rigidity [Unknown]
  - Agitation [Unknown]
  - Miosis [Not Recovered/Not Resolved]
  - Nervousness [Unknown]
  - Dizziness [Not Recovered/Not Resolved]
  - Weight decreased [Unknown]
  - Urinary incontinence [Recovering/Resolving]
  - Product prescribing error [Unknown]
  - Therapeutic response unexpected [Unknown]

NARRATIVE: CASE EVENT DATE: 2017
